FAERS Safety Report 9221645 (Version 1)
Quarter: 2013Q2

REPORT INFORMATION
  Report Type: Spontaneous
  Country: US (occurrence: US)
  Receive Date: 20130410
  Receipt Date: 20130410
  Transmission Date: 20140414
  Serious: No
  Sender: FDA-Public Use
  Company Number: US-009507513-1304USA003750

PATIENT
  Sex: Male

DRUGS (8)
  1. PEGINTRON [Suspect]
     Dosage: 150 MCG/0.5 ML, REDIPEN
     Route: 058
  2. REBETOL [Suspect]
     Dosage: 200 MG, UNK
  3. LOSARTAN POTASSIUM TABLETS [Concomitant]
     Dosage: 25 MG, UNK
  4. MELOXICAM [Concomitant]
     Dosage: 7.5 MG, UNK
  5. GLIPIZIDE [Concomitant]
     Dosage: 5 MG, UNK
  6. AMLODIPINE [Concomitant]
     Dosage: 5 MG, UNK
  7. METFORMIN [Concomitant]
     Dosage: 500 MG, UNK
  8. HYDROCODONE [Concomitant]

REACTIONS (1)
  - Nausea [Unknown]
